FAERS Safety Report 9775293 (Version 1)
Quarter: 2013Q4

REPORT INFORMATION
  Report Type: Report from Study
  Country: US (occurrence: US)
  Receive Date: 20131220
  Receipt Date: 20131220
  Transmission Date: 20140711
  Serious: Yes (Other)
  Sender: FDA-Public Use
  Company Number: US-TAKEDA-2013TUS003213

PATIENT
  Age: 58 Year
  Sex: Male
  Weight: 156.9 kg

DRUGS (12)
  1. BLINDED ALLOPURINOL [Suspect]
     Indication: HYPERURICAEMIA
     Dosage: UNK UNK, QD
     Route: 048
     Dates: start: 20130430
  2. BLINDED FEBUXOSTAT [Suspect]
     Indication: HYPERURICAEMIA
     Dosage: UNK UNK, QD
     Route: 048
     Dates: start: 20130430
  3. BUMEX [Concomitant]
     Indication: OEDEMA
     Dosage: 1 MG, BID
     Route: 048
     Dates: start: 20101221
  4. FENTANYL [Concomitant]
     Indication: BACK PAIN
     Dosage: 100 ?G, PRN
     Route: 061
     Dates: start: 201012
  5. LISINOPRIL [Concomitant]
     Indication: HYPERTENSION
     Dosage: 10 MG, QD
     Route: 048
     Dates: start: 2007
  6. SIMVASTATIN [Concomitant]
     Indication: HYPERLIPIDAEMIA
     Dosage: 40 MG, QD
     Route: 048
     Dates: start: 2007
  7. TRICOR                             /00499301/ [Concomitant]
     Indication: HYPERLIPIDAEMIA
     Dosage: 145 MG, QD
     Route: 048
     Dates: start: 2007
  8. LANTUS [Concomitant]
     Indication: HYPERGLYCAEMIA
     Dosage: 75 IU, QHS
     Route: 058
     Dates: start: 20130425
  9. HUMALOG [Concomitant]
     Indication: HYPERGLYCAEMIA
     Dosage: 10 IU, TID
     Route: 058
     Dates: start: 20130425
  10. COUMADIN                           /00014802/ [Concomitant]
     Indication: DEEP VEIN THROMBOSIS
     Dosage: 5 MG, SU/T/TH/F/S
     Route: 048
     Dates: start: 20130724
  11. COUMADIN                           /00014802/ [Concomitant]
     Dosage: 7 MG, M/W
     Route: 048
     Dates: start: 20130724
  12. AUGMENTIN                          /00756801/ [Concomitant]
     Indication: LYMPHADENOPATHY
     Dosage: 875 MG, BID
     Route: 048
     Dates: start: 20131021, end: 20131104

REACTIONS (1)
  - Throat cancer [Not Recovered/Not Resolved]
